FAERS Safety Report 25163059 (Version 1)
Quarter: 2025Q2

REPORT INFORMATION
  Report Type: Spontaneous
  Country: CN (occurrence: CN)
  Receive Date: 20250404
  Receipt Date: 20250404
  Transmission Date: 20250716
  Serious: Yes (Life-Threatening, Hospitalization, Other)
  Sender: BAYER
  Company Number: CN-BAYER-2025A045111

PATIENT
  Age: 31 Year
  Sex: Male
  Weight: 89 kg

DRUGS (2)
  1. ULTRAVIST [Suspect]
     Active Substance: IOPROMIDE
     Indication: Computerised tomogram head
     Route: 042
     Dates: start: 20250331, end: 20250331
  2. ULTRAVIST [Suspect]
     Active Substance: IOPROMIDE
     Indication: Computerised tomogram neck

REACTIONS (17)
  - Anaphylactic shock [Recovering/Resolving]
  - Nausea [Recovering/Resolving]
  - Vomiting [Recovering/Resolving]
  - Pallor [Recovering/Resolving]
  - Depressed level of consciousness [None]
  - Chest discomfort [Recovering/Resolving]
  - Thirst [Recovering/Resolving]
  - Hyperhidrosis [None]
  - Blood pressure decreased [Recovered/Resolved]
  - Oxygen saturation immeasurable [None]
  - Pulse abnormal [Recovered/Resolved]
  - Tachypnoea [Recovering/Resolving]
  - Pruritus [Recovering/Resolving]
  - Cold sweat [Recovering/Resolving]
  - Tremor [Recovering/Resolving]
  - Muscle rigidity [Recovering/Resolving]
  - Confusional state [Recovering/Resolving]

NARRATIVE: CASE EVENT DATE: 20250331
